FAERS Safety Report 9178154 (Version 2)
Quarter: 2012Q4

REPORT INFORMATION
  Report Type: 
  Country: US (occurrence: US)
  Receive Date: 20121023
  Receipt Date: 20121029
  Transmission Date: 20130627
  Serious: Yes (Life-Threatening, Hospitalization)
  Sender: FDA-Public Use
  Company Number: US-BIOMARINP-003139

PATIENT
  Age: 16 None
  Sex: Male
  Weight: 57 kg

DRUGS (1)
  1. KUVAN [Suspect]
     Indication: PHENYLKETONURIA
     Route: 048
     Dates: start: 20120927

REACTIONS (1)
  - Suicide attempt [Recovering/Resolving]
